FAERS Safety Report 10560880 (Version 2)
Quarter: 2014Q4

REPORT INFORMATION
  Report Type: Spontaneous
  Country: BE (occurrence: BE)
  Receive Date: 20141103
  Receipt Date: 20141107
  Transmission Date: 20150529
  Serious: Yes (Hospitalization)
  Sender: FDA-Public Use
  Company Number: PHHY2014BE140293

PATIENT
  Age: 64 Year
  Sex: Male

DRUGS (4)
  1. MIRTAZAPINE. [Suspect]
     Active Substance: MIRTAZAPINE
     Indication: DEPRESSION
     Dosage: 30 MG, UNK
     Route: 065
  2. OLANZAPINE. [Suspect]
     Active Substance: OLANZAPINE
     Indication: DEPRESSION
     Dosage: 20 MG, UNK
     Route: 065
  3. MIANSERIN [Suspect]
     Active Substance: MIANSERIN
     Indication: DEPRESSION
     Dosage: 60 MG, UNK
     Route: 065
  4. PAROXETINE [Suspect]
     Active Substance: PAROXETINE\PAROXETINE HYDROCHLORIDE
     Indication: DEPRESSION
     Dosage: 40 MG, UNK
     Route: 065

REACTIONS (20)
  - Neuroleptic malignant syndrome [Recovering/Resolving]
  - Hyperhidrosis [Recovering/Resolving]
  - Leukocytosis [Recovering/Resolving]
  - Tachycardia [Recovering/Resolving]
  - Hypernatraemia [Recovering/Resolving]
  - Delirium [Recovering/Resolving]
  - Generalised anxiety disorder [Recovering/Resolving]
  - Nausea [Recovering/Resolving]
  - Depression [Unknown]
  - Thinking abnormal [Recovering/Resolving]
  - Suspiciousness [Recovering/Resolving]
  - Tremor [Recovering/Resolving]
  - Delusion [Recovering/Resolving]
  - Depressed mood [Recovering/Resolving]
  - Psychomotor retardation [Recovering/Resolving]
  - Disorientation [Recovering/Resolving]
  - Confusional state [Recovering/Resolving]
  - Pyrexia [Recovering/Resolving]
  - Hypertension [Recovering/Resolving]
  - Agitation [Recovering/Resolving]
